FAERS Safety Report 14507815 (Version 1)
Quarter: 2018Q1

REPORT INFORMATION
  Report Type: Other
  Country: NL (occurrence: NL)
  Receive Date: 20180208
  Receipt Date: 20180208
  Transmission Date: 20180509
  Serious: Yes (Hospitalization)
  Sender: FDA-Public Use
  Company Number: NL-VERTEX PHARMACEUTICALS-2018-000819

PATIENT
  Sex: Female
  Weight: 46 kg

DRUGS (14)
  1. MACROGOL [Concomitant]
     Active Substance: POLYETHYLENE GLYCOLS
  2. VITAMIN D                          /00107901/ [Concomitant]
     Active Substance: ERGOCALCIFEROL
     Dosage: 1 DD 1
     Dates: start: 20170801
  3. AMYLASE W/PROTEASE [Concomitant]
     Dosage: VOLGENS VOORSCHRIFT 4 STUKS PER DAG VOLGENS AFSPRAAK
  4. ORKAMBI [Suspect]
     Active Substance: IVACAFTOR\LUMACAFTOR
     Indication: CYSTIC FIBROSIS
     Dosage: 1XD 1IVM CO-MEDICATIE (TRISPORAL)
     Route: 048
     Dates: start: 20171106
  5. VITAMIN E [Concomitant]
     Active Substance: .ALPHA.-TOCOPHEROL
     Dosage: 1 DD 0.5 STUKS
  6. SALBUTAMOL [Concomitant]
     Active Substance: ALBUTEROL
     Dosage: ZN 2 DD 1 DOSIS ZN 1 1 PUFJE EXTRA
  7. COTRIMOXAZOL [Concomitant]
     Active Substance: SULFAMETHOXAZOLE\TRIMETHOPRIM
     Dosage: 2 DD 480 MG
     Dates: start: 20171115
  8. FLIXONASE [Concomitant]
     Active Substance: FLUTICASONE PROPIONATE
     Dosage: 1 DD 1 DO IN ELK NEUSGAT
     Dates: start: 20170313
  9. ORKAMBI [Suspect]
     Active Substance: IVACAFTOR\LUMACAFTOR
     Dosage: 2 DOSAGE FORM, BID
     Route: 048
     Dates: start: 20171113
  10. DORNASE ALFA. [Concomitant]
     Active Substance: DORNASE ALFA
     Dosage: 2 DD 2,5 MG 30 MIN NA VERNEVELEN HUFFEN EN HOESTEN
     Dates: start: 20160814
  11. SALMETEROL/FLUTICASONE CASCAN [Concomitant]
     Active Substance: FLUTICASONE PROPIONATE\SALMETEROL XINAFOATE
     Dosage: 2 DD 1 DOSIS
     Dates: start: 20171109
  12. CREON [Concomitant]
     Active Substance: PANCRELIPASE AMYLASE\PANCRELIPASE LIPASE\PANCRELIPASE PROTEASE
     Dosage: VOLGENS VOORSCHRIFT VOLGENS AFSPRAAK 25 ST./DD
  13. OMEPRAZOLE. [Concomitant]
     Active Substance: OMEPRAZOLE
     Dosage: 2 DD 10 MG
     Dates: start: 20171109
  14. VITAMIN A                          /00056001/ [Concomitant]
     Active Substance: RETINOL
     Dosage: 1 DD 1
     Dates: start: 20170801

REACTIONS (4)
  - Abdominal pain [Recovering/Resolving]
  - Ureterolithiasis [Recovering/Resolving]
  - Lung disorder [Recovering/Resolving]
  - Nausea [Recovering/Resolving]
